FAERS Safety Report 5871853-5 (Version None)
Quarter: 2008Q3

REPORT INFORMATION
  Report Type: 
  Country: None (occurrence: None)
  Receive Date: 20080904
  Receipt Date: 20080904
  Transmission Date: 20090109
  Serious: Yes (Life-Threatening)
  Sender: FDA-Public Use
  Company Number: None

PATIENT
  Age: 45 Year
  Sex: Male
  Weight: 104.3273 kg

DRUGS (2)
  1. CYMBALTA [Suspect]
     Indication: ANXIETY
     Dosage: 20 MG DAILY PO
     Route: 048
     Dates: start: 20080210, end: 20080903
  2. CYMBALTA [Suspect]
     Indication: DEPRESSION
     Dosage: 20 MG DAILY PO
     Route: 048
     Dates: start: 20080210, end: 20080903

REACTIONS (20)
  - ANOSMIA [None]
  - ASTHENIA [None]
  - CHEST PAIN [None]
  - COGNITIVE DISORDER [None]
  - DECREASED INTEREST [None]
  - DRUG INEFFECTIVE [None]
  - DRUG WITHDRAWAL SYNDROME [None]
  - EMOTIONAL DISORDER [None]
  - HEADACHE [None]
  - HYPOAESTHESIA [None]
  - ILL-DEFINED DISORDER [None]
  - INFLUENZA LIKE ILLNESS [None]
  - MALAISE [None]
  - MUSCLE TIGHTNESS [None]
  - PARAESTHESIA [None]
  - PAROSMIA [None]
  - SOMNOLENCE [None]
  - SUICIDAL IDEATION [None]
  - THINKING ABNORMAL [None]
  - TREMOR [None]
